FAERS Safety Report 5767936-0 (Version None)
Quarter: 2008Q2

REPORT INFORMATION
  Report Type: 
  Country: None (occurrence: None)
  Receive Date: 20080601
  Receipt Date: 20080226
  Transmission Date: 20081010
  Serious: No
  Sender: FDA-Public Use
  Company Number: US200802006284

PATIENT
  Age: 62 Year
  Sex: Female

DRUGS (17)
  1. BYETTA [Suspect]
     Indication: TYPE 2 DIABETES MELLITUS
     Dosage: 5 UG, 2/D, SUBCUTANEOUS ; 10 UG, 2/D, SUBCUTANEOUS
     Route: 058
     Dates: start: 20070101, end: 20070101
  2. BYETTA [Suspect]
     Indication: TYPE 2 DIABETES MELLITUS
     Dosage: 5 UG, 2/D, SUBCUTANEOUS ; 10 UG, 2/D, SUBCUTANEOUS
     Route: 058
     Dates: start: 20070101
  3. METFORMIN HCL [Concomitant]
  4. GLUCOPHAGE [Concomitant]
  5. HYDROCHLOROTHIAZIDE W/TRIAMTERENE (HYDROCHLOROTHIAZIDE, TRIAMTERENE) [Concomitant]
  6. ERYTHROPOIETIN (ERYTHROPOIETIN) [Concomitant]
  7. VYTORIN (EZETIMIBE) [Concomitant]
  8. SULAR [Concomitant]
  9. PREVACID [Concomitant]
  10. FOSAMAX [Concomitant]
  11. AVAPRO [Concomitant]
  12. CO-Q10 (UBIDECARENONE) [Concomitant]
  13. ASPIRIN [Concomitant]
  14. SLOW-FE (FERROUS SULFATE EXSICCATED) [Concomitant]
  15. CALCIUM WITH VITAMIN D (CALCIUM PHOSPHATE, CALCIUM SODIUM LACTATE, ERG [Concomitant]
  16. VITAMIN B COMPLEX CAP [Concomitant]
  17. CENTRUM SILVER (ASCORBIC ACID, CALCIUM, MINERALS NOS, RETINOL, TOCOPHE [Concomitant]

REACTIONS (3)
  - BLOOD GLUCOSE INCREASED [None]
  - INCREASED APPETITE [None]
  - RENAL FAILURE CHRONIC [None]
